FAERS Safety Report 4337875-0 (Version None)
Quarter: 2004Q1

REPORT INFORMATION
  Report Type: 
  Country: None (occurrence: None)
  Receive Date: 20040329
  Receipt Date: 20040226
  Transmission Date: 20041129
  Serious: Yes (Hospitalization)
  Sender: FDA-Public Use
  Company Number: USA040259972

PATIENT
  Age: 34 Year
  Sex: Male
  Weight: 86 kg

DRUGS (2)
  1. STRATTERA [Suspect]
     Dosage: 40 MG/1 DAY
  2. CELEXA [Concomitant]

REACTIONS (4)
  - ABSCESS [None]
  - ANGIONEUROTIC OEDEMA [None]
  - PYREXIA [None]
  - RASH [None]
